FAERS Safety Report 6987184-6 (Version None)
Quarter: 2010Q3

REPORT INFORMATION
  Report Type: 
  Country: None (occurrence: None)
  Receive Date: 20100916
  Receipt Date: 20100907
  Transmission Date: 20110219
  Serious: Yes (Other)
  Sender: FDA-Public Use
  Company Number: US-PFIZER INC-2010113463

PATIENT
  Sex: Male
  Weight: 81.646 kg

DRUGS (4)
  1. CHANTIX [Suspect]
     Dosage: 0.5 MG, 1X/DAY
     Dates: start: 20100501, end: 20100101
  2. CHANTIX [Suspect]
     Dosage: 0.5 MG, 2X/DAY
     Dates: start: 20100101, end: 20100101
  3. CHANTIX [Suspect]
     Dosage: 1 MG, 2X/DAY
     Dates: start: 20100101
  4. CHANTIX [Suspect]
     Dosage: UNK
     Dates: start: 20100101, end: 20100904

REACTIONS (7)
  - ASTHENIA [None]
  - COUGH [None]
  - DYSPHAGIA [None]
  - FATIGUE [None]
  - INCREASED UPPER AIRWAY SECRETION [None]
  - PHARYNGEAL OEDEMA [None]
  - UPPER-AIRWAY COUGH SYNDROME [None]
